FAERS Safety Report 6253819-9 (Version None)
Quarter: 2009Q3

REPORT INFORMATION
  Report Type: 
  Country: None (occurrence: None)
  Receive Date: 20090702
  Receipt Date: 20090622
  Transmission Date: 20100115
  Serious: Yes (Disabling)
  Sender: FDA-Public Use
  Company Number: BR-RANBAXY-2009R5-25194

PATIENT

DRUGS (1)
  1. CECNOIN [Suspect]
     Indication: ACNE
     Dosage: 20 MG, QD
     Route: 048

REACTIONS (1)
  - SKIN ULCER [None]
